FAERS Safety Report 7914712-6 (Version None)
Quarter: 2011Q4

REPORT INFORMATION
  Report Type: 
  Country: None (occurrence: None)
  Receive Date: 20111115
  Receipt Date: 20111109
  Transmission Date: 20120403
  Serious: Yes (Death, Other)
  Sender: FDA-Public Use
  Company Number: PHHY2011BR098852

PATIENT
  Sex: Female

DRUGS (5)
  1. EXELON [Suspect]
     Indication: DEMENTIA ALZHEIMER'S TYPE
     Dosage: 9.5 MG, (18MG/10CM2, 1 PATCH DAILY)
     Route: 062
  2. STALEVO 100 [Concomitant]
     Dosage: 0.5 DF, (50/12.5/200 MG)
  3. WARFARIN SODIUM [Concomitant]
     Indication: ANTICOAGULANT THERAPY
     Dosage: 0.5 DF, QD
  4. OMEPRAZOLE [Concomitant]
     Indication: GASTRIC DISORDER
     Dosage: 0.5 DF, QD
  5. STALEVO 100 [Concomitant]
     Indication: TREMOR
     Dosage: 0.25 DF, (50/12.5/200 MG)

REACTIONS (7)
  - MEMORY IMPAIRMENT [None]
  - CARDIAC ARREST [None]
  - HERNIA [None]
  - AGITATION [None]
  - LOGORRHOEA [None]
  - PULMONARY EMBOLISM [None]
  - VOMITING [None]
